FAERS Safety Report 9125412 (Version 1)
Quarter: 2013Q1

REPORT INFORMATION
  Report Type: Spontaneous
  Country: US (occurrence: US)
  Receive Date: 20130117
  Receipt Date: 20130117
  Transmission Date: 20140127
  Serious: Yes (Hospitalization)
  Sender: FDA-Public Use
  Company Number: US-JNJFOC-20130104764

PATIENT
  Age: 36 Year
  Sex: Male
  Weight: 101.61 kg

DRUGS (2)
  1. SUDAFED PE [Suspect]
     Indication: SINUS CONGESTION
     Route: 048
     Dates: end: 20121224
  2. SUDAFED [Suspect]
     Indication: SINUS HEADACHE
     Route: 048
     Dates: end: 20121224

REACTIONS (1)
  - Atrial fibrillation [Recovered/Resolved]
